FAERS Safety Report 12332946 (Version 1)
Quarter: 2016Q2

REPORT INFORMATION
  Report Type: Spontaneous
  Country: US (occurrence: US)
  Receive Date: 20160504
  Receipt Date: 20160504
  Transmission Date: 20160815
  Serious: No
  Sender: FDA-Public Use
  Company Number: US-ROCHE-ITM201506IM018050

PATIENT
  Sex: Male
  Weight: 79.45 kg

DRUGS (1)
  1. ESBRIET [Suspect]
     Active Substance: PIRFENIDONE
     Indication: IDIOPATHIC PULMONARY FIBROSIS
     Dosage: 2403 MG DAILY 3 CAPS
     Route: 048
     Dates: start: 20150417

REACTIONS (5)
  - Photosensitivity reaction [Unknown]
  - Herpes zoster [Not Recovered/Not Resolved]
  - Rash [Unknown]
  - Cough [Unknown]
  - Nasopharyngitis [Unknown]
